FAERS Safety Report 6793787-4 (Version None)
Quarter: 2010Q2

REPORT INFORMATION
  Report Type: 
  Country: None (occurrence: None)
  Receive Date: 20100624
  Receipt Date: 20090506
  Transmission Date: 20101027
  Serious: No
  Sender: FDA-Public Use
  Company Number: US-PFIZER INC-2009170414

PATIENT
  Sex: Female
  Weight: 72.6 kg

DRUGS (2)
  1. RELPAX [Suspect]
     Indication: MIGRAINE
     Dosage: 40 MG, 1X/DAY
     Dates: start: 20070101
  2. HYDROCODONE [Concomitant]
     Dosage: UNK

REACTIONS (3)
  - AGITATION [None]
  - ANGER [None]
  - NAUSEA [None]
